FAERS Safety Report 7005857-6 (Version None)
Quarter: 2010Q3

REPORT INFORMATION
  Report Type: 
  Country: None (occurrence: None)
  Receive Date: 20100921
  Receipt Date: 20100915
  Transmission Date: 20110219
  Serious: Yes (Other)
  Sender: FDA-Public Use
  Company Number: US-B.I. PHARMACEUTICALS,INC./RIDGEFIELD-2010-BP-10452BP

PATIENT
  Age: 67 Year
  Sex: Female

DRUGS (12)
  1. CATAPRES [Suspect]
     Indication: BLOOD PRESSURE
     Dosage: 0.1 MG
  2. GLUCOTROL XL (GLIPIZIDE) GASTRO-RESISTANT TABLET [Suspect]
     Dates: start: 19960101
  3. GLIPIZIDE (GLIPIZIDE) GASTRO-RESISTANT TABLET [Suspect]
     Indication: TYPE 2 DIABETES MELLITUS
  4. ESTRADIOL [Suspect]
  5. GLIPIZIDE (GLIPIZIDE) [Suspect]
     Indication: DIABETES MELLITUS
  6. CHROMIUM PICOLINATE (CHROMIUM PICOLINATE) [Suspect]
     Indication: SUPPLEMENTATION THERAPY
  7. COLCHICINE (COLCHICINE) [Suspect]
  8. ACTOS [Suspect]
     Indication: DIABETES MELLITUS
  9. AVANDIA [Suspect]
     Indication: DIABETES MELLITUS
  10. REZULIN [Suspect]
     Indication: DIABETES MELLITUS
  11. ASCORBIC ACID [Concomitant]
  12. GLUCOPHAGE [Concomitant]

REACTIONS (10)
  - BLOOD GLUCOSE INCREASED [None]
  - BLOOD PRESSURE INCREASED [None]
  - DIARRHOEA [None]
  - DRUG DISPENSING ERROR [None]
  - DRUG INEFFECTIVE [None]
  - FATIGUE [None]
  - GLYCOSYLATED HAEMOGLOBIN INCREASED [None]
  - NEUROPATHY PERIPHERAL [None]
  - OEDEMA [None]
  - TREMOR [None]
